FAERS Safety Report 7710801-X (Version None)
Quarter: 2011Q3

REPORT INFORMATION
  Report Type: 
  Country: None (occurrence: None)
  Receive Date: 20110825
  Receipt Date: 20110802
  Transmission Date: 20111222
  Serious: Yes (Other)
  Sender: FDA-Public Use
  Company Number: CA-ASTRAZENECA-2011SE44595

PATIENT
  Sex: Female

DRUGS (5)
  1. NEXIUM [Suspect]
     Indication: GASTROOESOPHAGEAL REFLUX DISEASE
     Route: 048
  2. SPIRIVA [Concomitant]
  3. VENTOLIN HFA [Concomitant]
  4. ESOMEPRAZOLE MAGNESIUM [Suspect]
     Dosage: NON AZ GENERIC
     Route: 048
     Dates: start: 20110101
  5. LIPITOR [Concomitant]

REACTIONS (2)
  - DRUG INEFFECTIVE [None]
  - LUNG CARCINOMA CELL TYPE UNSPECIFIED STAGE IV [None]
